APPROVED DRUG PRODUCT: MYORISAN
Active Ingredient: ISOTRETINOIN
Strength: 40MG
Dosage Form/Route: CAPSULE;ORAL
Application: A076485 | Product #003 | TE Code: AB1
Applicant: UPSHER SMITH LABORATORIES LLC
Approved: Jan 19, 2012 | RLD: No | RS: No | Type: RX